FAERS Safety Report 8514387-1 (Version None)
Quarter: 2012Q3

REPORT INFORMATION
  Report Type: 
  Country: None (occurrence: None)
  Receive Date: 20120717
  Receipt Date: 20120712
  Transmission Date: 20120928
  Serious: Yes (Hospitalization)
  Sender: FDA-Public Use
  Company Number: US-BAYER-2012-002946

PATIENT
  Age: 42 Year
  Sex: Female

DRUGS (8)
  1. YASMIN [Suspect]
     Indication: PREMENSTRUAL SYNDROME
     Dosage: UNK
     Route: 048
     Dates: start: 20070101, end: 20100101
  2. YAZ [Suspect]
     Indication: PREMENSTRUAL SYNDROME
     Dosage: UNK
     Dates: start: 20070101, end: 20100101
  3. OTHER ANALGESICS AND ANTIPYRETICS [Concomitant]
  4. LUVOX [Concomitant]
     Indication: DEPRESSION
  5. PRILOSEC [Concomitant]
  6. NSAID'S [Concomitant]
  7. METOPROLOL TARTRATE [Concomitant]
     Indication: HEART RATE INCREASED
  8. CELEXA [Concomitant]

REACTIONS (5)
  - BILIARY DYSKINESIA [None]
  - FEAR [None]
  - PAIN [None]
  - GALLBLADDER INJURY [None]
  - DEEP VEIN THROMBOSIS [None]
